FAERS Safety Report 20213049 (Version 1)
Quarter: 2021Q4

REPORT INFORMATION
  Report Type: Spontaneous
  Country: US (occurrence: US)
  Receive Date: 20211221
  Receipt Date: 20211221
  Transmission Date: 20220303
  Serious: No
  Sender: FDA-Public Use
  Company Number: US-SA-SAC20211217000512

PATIENT
  Age: 35 Year
  Sex: Female
  Weight: 69.8 kg

DRUGS (1)
  1. DUPIXENT [Suspect]
     Active Substance: DUPILUMAB
     Indication: Dermatomyositis
     Dosage: 300 MG, QOW
     Route: 058

REACTIONS (3)
  - Malaise [Unknown]
  - Product dose omission issue [Unknown]
  - Product use in unapproved indication [Unknown]
